FAERS Safety Report 14648453 (Version 1)
Quarter: 2018Q1

REPORT INFORMATION
  Report Type: Spontaneous
  Country: AR (occurrence: AR)
  Receive Date: 20180316
  Receipt Date: 20180316
  Transmission Date: 20180509
  Serious: Yes (Hospitalization)
  Sender: FDA-Public Use
  Company Number: AR-PFIZER INC-2018104627

PATIENT
  Age: 79 Year
  Sex: Female

DRUGS (3)
  1. METHOTREXATO /00113801/ [Concomitant]
     Active Substance: METHOTREXATE
     Dosage: 15 MG, UNK
  2. XELJANZ [Suspect]
     Active Substance: TOFACITINIB CITRATE
     Dosage: 5 MG, 2X/DAY
     Dates: start: 201801
  3. PREDNISONA [Concomitant]
     Active Substance: PREDNISONE
     Dosage: UNK

REACTIONS (2)
  - Syncope [Unknown]
  - Gastroenteritis [Unknown]
